FAERS Safety Report 10227175 (Version 1)
Quarter: 2014Q2

REPORT INFORMATION
  Report Type: Spontaneous
  Country: CN (occurrence: CN)
  Receive Date: 20140610
  Receipt Date: 20140610
  Transmission Date: 20141212
  Serious: Yes (Other)
  Sender: FDA-Public Use
  Company Number: CN-ASTRAZENECA-2014SE40274

PATIENT
  Age: 17451 Day
  Sex: Male
  Weight: 82 kg

DRUGS (1)
  1. ESOMEPRAZOLE MAGNESIUM [Suspect]
     Indication: GASTROOESOPHAGEAL REFLUX DISEASE
     Dosage: 20 MG OR 40 MG DAILY
     Route: 048
     Dates: start: 20110505, end: 20131225

REACTIONS (2)
  - Osteoporosis [Recovering/Resolving]
  - Muscle spasms [Unknown]
